FAERS Safety Report 6261154-8 (Version None)
Quarter: 2009Q3

REPORT INFORMATION
  Report Type: 
  Country: None (occurrence: None)
  Receive Date: 20090709
  Receipt Date: 20080616
  Transmission Date: 20100115
  Serious: No
  Sender: FDA-Public Use
  Company Number: US-KINGPHARMUSA00001-K200800713

PATIENT
  Sex: Female

DRUGS (1)
  1. LEVOXYL [Suspect]
     Dates: start: 20010101

REACTIONS (1)
  - PALPITATIONS [None]
